FAERS Safety Report 9815674 (Version 1)
Quarter: 2014Q1

REPORT INFORMATION
  Report Type: Spontaneous
  Country: FR (occurrence: None)
  Receive Date: 20140110
  Receipt Date: 20140110
  Transmission Date: 20141002
  Serious: Yes (Hospitalization)
  Sender: FDA-Public Use
  Company Number: 2109666

PATIENT
  Age: 71 Year
  Sex: Male

DRUGS (7)
  1. CARBOPLATIN [Suspect]
     Indication: CHEMOTHERAPY
     Route: 042
     Dates: start: 20131011
  2. DOCETAXEL [Suspect]
     Indication: CHEMOTHERAPY
     Route: 042
     Dates: start: 20131011, end: 20131011
  3. NORVIR [Concomitant]
  4. PREZISTA [Concomitant]
  5. INTELENCE [Concomitant]
  6. ZOPHREN [Concomitant]
  7. SOLUMEDROL [Concomitant]

REACTIONS (6)
  - Agranulocytosis [None]
  - Toxic skin eruption [None]
  - Palmar-plantar erythrodysaesthesia syndrome [None]
  - Thrombocytopenia [None]
  - Mucosal inflammation [None]
  - Diarrhoea [None]
